FAERS Safety Report 17247574 (Version 2)
Quarter: 2020Q1

REPORT INFORMATION
  Report Type: Spontaneous
  Country: FR (occurrence: FR)
  Receive Date: 20200108
  Receipt Date: 20200205
  Transmission Date: 20200409
  Serious: Yes (Hospitalization)
  Sender: FDA-Public Use
  Company Number: FR-MYLANLABS-2020M1001210

PATIENT
  Age: 36 Year
  Sex: Male

DRUGS (3)
  1. CYTARABINE EBEWE [Suspect]
     Active Substance: CYTARABINE
     Indication: LYMPHANGIOLEIOMYOMATOSIS
     Dosage: 380 MILLIGRAM, QD
     Route: 041
     Dates: start: 20190715, end: 20190721
  2. VANCOMYCIN MYLAN [Suspect]
     Active Substance: VANCOMYCIN
     Indication: INFECTION
     Dosage: 2500 MILLIGRAM, QD
     Route: 041
     Dates: start: 20190722, end: 20190729
  3. PIPERACILLIN AND TAZOBACTAM [Suspect]
     Active Substance: PIPERACILLIN SODIUM\TAZOBACTAM SODIUM
     Indication: INFECTION
     Dosage: 16 GRAM, QD
     Route: 041
     Dates: start: 20190722, end: 20190731

REACTIONS (5)
  - Balanoposthitis [Recovering/Resolving]
  - Rash morbilliform [Recovering/Resolving]
  - Cheilitis [Recovering/Resolving]
  - Conjunctivitis [Recovering/Resolving]
  - Mucosal inflammation [Recovering/Resolving]

NARRATIVE: CASE EVENT DATE: 20190723
